FAERS Safety Report 4081562 (Version 2)
Quarter: 2023Q2

REPORT INFORMATION
  Report Type: Spontaneous
  Country: DE (occurrence: None)
  Receive Date: 20040206
  Receipt Date: 20230407
  Transmission Date: 20230722
  Serious: Yes (Hospitalization)
  Sender: FDA-Public Use
  Company Number: None

PATIENT
  Age: 33 Year
  Sex: Female
  Weight: 52 kg

DRUGS (44)
  1. CLONAZEPAM [Suspect]
     Active Substance: CLONAZEPAM
     Indication: Epilepsy
     Dosage: PRN.
     Route: 048
     Dates: start: 20011112, end: 20011205
  2. MIDAZOLAM MALEATE [Suspect]
     Active Substance: MIDAZOLAM MALEATE
     Indication: Pain
     Route: 048
     Dates: start: 20011113, end: 20011117
  3. LASIX [Suspect]
     Active Substance: FUROSEMIDE
     Indication: Oedema
     Route: 042
     Dates: end: 20011126
  4. NOVALGIN (METAMIZOLE SODIUM) [Suspect]
     Active Substance: METAMIZOLE SODIUM
     Indication: Pain
     Dosage: PRN.
     Route: 042
     Dates: start: 20011128, end: 20011202
  5. TAVOR (LORAZEPAM) [Suspect]
     Active Substance: LORAZEPAM
     Indication: Agitation
     Route: 048
     Dates: start: 20011118, end: 20011202
  6. LAMICTAL [Suspect]
     Active Substance: LAMOTRIGINE
     Indication: Epilepsy
     Route: 048
     Dates: start: 20011112, end: 20011114
  7. LAMICTAL [Suspect]
     Active Substance: LAMOTRIGINE
     Route: 048
     Dates: start: 20011118, end: 20011124
  8. SULFAMETHOXAZOLE\TRIMETHOPRIM [Suspect]
     Active Substance: SULFAMETHOXAZOLE\TRIMETHOPRIM
     Indication: Infection
     Route: 042
     Dates: start: 20011116, end: 20011120
  9. NADROPARIN CALCIUM [Suspect]
     Active Substance: NADROPARIN CALCIUM
     Indication: Thrombosis prophylaxis
     Route: 058
     Dates: start: 20011117, end: 20011124
  10. DIFLUCAN [Suspect]
     Active Substance: FLUCONAZOLE
     Indication: Candida infection
     Route: 042
     Dates: start: 20011118, end: 20011120
  11. CIPROFLOXACIN [Suspect]
     Active Substance: CIPROFLOXACIN
     Indication: Infection
     Route: 042
     Dates: start: 20011121, end: 20011123
  12. AMOXICILLIN\CLAVULANATE POTASSIUM [Suspect]
     Active Substance: AMOXICILLIN\CLAVULANATE POTASSIUM
     Indication: Infection
     Route: 042
     Dates: start: 20011121, end: 20011123
  13. NOVODIGAL (.BETA.-ACETYLDIGOXIN) [Suspect]
     Active Substance: .BETA.-ACETYLDIGOXIN
     Indication: Cardiac failure
     Route: 042
     Dates: start: 20011121, end: 20011202
  14. EGG PHOSPHOLIPIDS\GLYCERIN\SOYBEAN OIL [Suspect]
     Active Substance: EGG PHOSPHOLIPIDS\GLYCERIN\SOYBEAN OIL
     Indication: Product used for unknown indication
     Dosage: DAILY, PRN.
     Route: 042
     Dates: start: 20011121, end: 20011205
  15. RANITIDINE HYDROCHLORIDE [Suspect]
     Active Substance: RANITIDINE HYDROCHLORIDE
     Indication: Product used for unknown indication
     Route: 042
     Dates: start: 20011123, end: 20011126
  16. URSODIOL [Suspect]
     Active Substance: URSODIOL
     Indication: Cholelithiasis
     Route: 048
     Dates: start: 20011123, end: 20011128
  17. ORNITHINE ASPARTATE [Suspect]
     Active Substance: ORNITHINE ASPARTATE
     Indication: Liver disorder
     Route: 048
     Dates: start: 20011124, end: 20011128
  18. ACTRAPID [Suspect]
     Active Substance: INSULIN HUMAN
     Indication: Metabolic disorder
     Route: 042
     Dates: start: 20011124, end: 20011202
  19. LACTULOSE [Suspect]
     Active Substance: LACTULOSE
     Indication: Constipation
     Route: 048
     Dates: start: 20011128, end: 20011205
  20. CLAFORAN [Suspect]
     Active Substance: CEFOTAXIME SODIUM
     Indication: Infection
     Route: 042
     Dates: start: 20011130, end: 20011201
  21. FERRLECIT [Suspect]
     Active Substance: SODIUM FERRIC GLUCONATE COMPLEX
     Indication: Iron deficiency
     Dosage: DAILY DOSE=1 AMPULE
     Route: 042
     Dates: start: 20011205, end: 20011205
  22. CLONIDINE [Suspect]
     Active Substance: CLONIDINE
     Indication: Hypertension
     Dosage: UNIT DOSE=6 AMPULE
     Route: 042
     Dates: start: 20011205
  23. THEOPHYLLINE [Suspect]
     Active Substance: THEOPHYLLINE
     Indication: Bronchospasm
     Dosage: DOSE: 6 MG/HR.
     Route: 042
     Dates: start: 20011205
  24. ATOSIL [Concomitant]
     Indication: Agitation
     Route: 042
     Dates: end: 20011111
  25. BRICANYL [Concomitant]
     Active Substance: TERBUTALINE SULFATE
     Indication: Obstructive airways disorder
     Dosage: FREQUENCY: PRN. UNIT DOSE=.5 AMPULE
     Route: 042
     Dates: end: 20011112
  26. AKINETON [Concomitant]
     Active Substance: BIPERIDEN HYDROCHLORIDE
     Indication: Extrapyramidal disorder
     Route: 042
     Dates: end: 20011113
  27. CILASTATIN SODIUM\IMIPENEM [Concomitant]
     Active Substance: CILASTATIN SODIUM\IMIPENEM
     Indication: Infection
     Route: 042
     Dates: end: 20011113
  28. VALPROIC ACID [Concomitant]
     Active Substance: VALPROIC ACID
     Indication: Epilepsy
     Route: 042
     Dates: end: 20011115
  29. IRON [Concomitant]
     Active Substance: IRON
     Indication: Iron deficiency
     Dosage: DAILY DOSE=1 AMPULE
     Route: 042
     Dates: end: 20011116
  30. SAB SIMPLEX [Concomitant]
     Indication: Flatulence
     Route: 048
     Dates: end: 20011120
  31. PANTOPRAZOLE [Concomitant]
     Active Substance: PANTOPRAZOLE
     Indication: Prophylaxis against gastrointestinal ulcer
     Route: 042
     Dates: end: 20011121
  32. VITAMIN B1 [Concomitant]
     Active Substance: THIAMINE HYDROCHLORIDE
     Indication: Vitamin B1 deficiency
     Dosage: DOSE: REPORTED AS 100.
     Route: 042
     Dates: end: 20011126
  33. SODIUM CHLORIDE [Concomitant]
     Active Substance: SODIUM CHLORIDE
     Indication: Fluid replacement
     Route: 042
     Dates: end: 20011130
  34. XYLOMETAZOLINE HYDROCHLORIDE [Concomitant]
     Active Substance: XYLOMETAZOLINE HYDROCHLORIDE
     Indication: Nasopharyngitis
     Route: 045
     Dates: end: 20011130
  35. NYSTATIN [Concomitant]
     Active Substance: NYSTATIN
     Indication: Candida infection
     Dosage: FREQUENCY: SEVERAL TIMES A DAY.
     Route: 065
     Dates: end: 20011202
  36. PREDNISOLONE [Concomitant]
     Active Substance: PREDNISOLONE
     Indication: Colitis ulcerative
     Route: 042
     Dates: end: 20011205
  37. POTASSIUM CHLORIDE [Concomitant]
     Active Substance: POTASSIUM CHLORIDE
     Indication: Metabolic disorder
     Route: 042
     Dates: end: 20011117
  38. DEXTROSE [Concomitant]
     Active Substance: DEXTROSE\DEXTROSE MONOHYDRATE
     Indication: Fluid replacement
     Dosage: DOSE REGIMEN WAS REPORTED AS : 5% AT 2000 ML / DAY, 40% AT 500 ML / DAY AND 70 % AT 2000 ML /DAY.
     Route: 042
     Dates: end: 20011205
  39. PIRITRAMIDE [Concomitant]
     Active Substance: PIRITRAMIDE
     Indication: Pain
     Dosage: 21 NOV 2001:3 MG, QDS WAS DISCONTINUED.?05 DEC 2001: 3 MG, TID, PRN WAS STARTED.
     Route: 042
  40. CALCIUM [Concomitant]
     Active Substance: CALCIUM
     Indication: Calcium deficiency
     Dosage: DOSAGE REGIMEN: ?26 NOV 2001:10 ML / DAY OF 20% AMPOULE WAS DISCONTINUED.?05 DEC 2001: 1 AMPOULE OF+
     Route: 042
  41. PASPERTIN [Concomitant]
     Indication: Nausea
     Dosage: DAILY DOSE=1 AMPULE
     Route: 042
     Dates: start: 20011113, end: 20011117
  42. KETAMINE [Concomitant]
     Active Substance: KETAMINE
     Indication: Pain
     Route: 042
     Dates: start: 20011113, end: 20011117
  43. FENTANYL [Concomitant]
     Active Substance: FENTANYL
     Indication: Pain
     Dosage: DOSE WAS ALSO REPORTED AS 1.5 MG. DAILY DOSE=3 AMPULE
     Route: 042
     Dates: start: 20011120, end: 20011120
  44. DOBUTAMINE HYDROCHLORIDE [Concomitant]
     Active Substance: DOBUTAMINE HYDROCHLORIDE
     Indication: Cardiac failure
     Route: 042
     Dates: start: 20011121, end: 20011121

REACTIONS (3)
  - Stevens-Johnson syndrome [Recovered/Resolved]
  - Sepsis [Recovered/Resolved]
  - Toxic epidermal necrolysis [Recovered/Resolved]

NARRATIVE: CASE EVENT DATE: 20011128
